FAERS Safety Report 15430462 (Version 2)
Quarter: 2018Q4

REPORT INFORMATION
  Report Type: Spontaneous
  Country: JP (occurrence: JP)
  Receive Date: 20180926
  Receipt Date: 20181030
  Transmission Date: 20190204
  Serious: Yes (Other)
  Sender: FDA-Public Use
  Company Number: JP-PFIZER INC-2018377394

PATIENT
  Sex: Female

DRUGS (2)
  1. SOLANAX [Suspect]
     Active Substance: ALPRAZOLAM
     Dosage: 2 DF, 2X/DAY(2 TABLETS, AFTER DINNER AND BEFORE SLEEP)
     Route: 048
  2. SOLANAX [Suspect]
     Active Substance: ALPRAZOLAM
     Indication: INSOMNIA
     Dosage: 0.6 MG, 1X/DAY
     Route: 048

REACTIONS (10)
  - Fatigue [Unknown]
  - Visual impairment [Unknown]
  - Muscular weakness [Unknown]
  - Asthenia [Unknown]
  - Glaucoma [Unknown]
  - Nervous system disorder [Unknown]
  - Rash erythematous [Unknown]
  - Pruritus generalised [Unknown]
  - Gait disturbance [Unknown]
  - Vision blurred [Unknown]
